FAERS Safety Report 19584491 (Version 1)
Quarter: 2021Q3

REPORT INFORMATION
  Report Type: Spontaneous
  Country: JP (occurrence: JP)
  Receive Date: 20210720
  Receipt Date: 20210720
  Transmission Date: 20211014
  Serious: Yes (Hospitalization)
  Sender: FDA-Public Use
  Company Number: JP-ALLERGAN-2126082US

PATIENT
  Sex: Female

DRUGS (2)
  1. ASENAPINE MALEATE ? BP [Suspect]
     Active Substance: ASENAPINE MALEATE
     Indication: SCHIZOPHRENIA
     Dosage: 10 MG, BID
     Route: 060
     Dates: start: 2017, end: 202012
  2. RISPERIDONE. [Concomitant]
     Active Substance: RISPERIDONE
     Dosage: UNK
     Dates: start: 2020, end: 2020

REACTIONS (4)
  - Restlessness [Recovering/Resolving]
  - Agitation [Recovering/Resolving]
  - Incoherent [Recovering/Resolving]
  - Insomnia [Recovering/Resolving]
